FAERS Safety Report 7289913-3 (Version None)
Quarter: 2011Q1

REPORT INFORMATION
  Report Type: 
  Country: None (occurrence: None)
  Receive Date: 20110214
  Receipt Date: 20110131
  Transmission Date: 20110831
  Serious: Yes (Hospitalization, Other)
  Sender: FDA-Public Use
  Company Number: ES-ELI_LILLY_AND_COMPANY-ES201102000007

PATIENT
  Sex: Female

DRUGS (5)
  1. SERC                               /00034201/ [Concomitant]
     Indication: MENIERE'S DISEASE
     Dosage: 3 D/F, DAILY (1/D)
     Route: 048
  2. FORTEO [Suspect]
     Indication: OSTEOPOROSIS
     Dosage: 20 UG, DAILY (1/D)
     Route: 058
     Dates: start: 20091019, end: 20110101
  3. IDAPTAN [Concomitant]
     Route: 048
  4. DOGMATIL [Concomitant]
     Indication: VERTIGO
  5. TORECAN [Concomitant]
     Indication: VERTIGO
     Route: 048

REACTIONS (1)
  - BREAST CANCER [None]
